FAERS Safety Report 14161480 (Version 2)
Quarter: 2018Q2

REPORT INFORMATION
  Report Type: Spontaneous
  Country: US (occurrence: US)
  Receive Date: 20171106
  Receipt Date: 20180605
  Transmission Date: 20180711
  Serious: No
  Sender: FDA-Public Use
  Company Number: US-PFIZER INC-2017476881

PATIENT
  Age: 45 Year
  Sex: Female
  Weight: 104 kg

DRUGS (5)
  1. NEOSAR [Concomitant]
     Active Substance: CYCLOPHOSPHAMIDE
     Dosage: UNK
  2. DOXIL [Concomitant]
     Active Substance: DOXORUBICIN HYDROCHLORIDE
     Dosage: UNK
  3. TAXOTERE [Suspect]
     Active Substance: DOCETAXEL
     Dosage: EVERY THREE WEEKS (6 CYCLES)
     Dates: start: 20140131, end: 20140603
  4. DOCETAXEL. [Suspect]
     Active Substance: DOCETAXEL
     Dosage: 6 CYCLES, EVERY THREE WEEKS
     Dates: start: 20140131, end: 20140603
  5. ADRIAMYCIN [Concomitant]
     Active Substance: DOXORUBICIN HYDROCHLORIDE
     Dosage: UNK

REACTIONS (7)
  - Hair texture abnormal [Unknown]
  - Alopecia [Not Recovered/Not Resolved]
  - Hair disorder [Unknown]
  - Hair colour changes [Unknown]
  - Malaise [Unknown]
  - Stress [Unknown]
  - Madarosis [Unknown]

NARRATIVE: CASE EVENT DATE: 201412
